FAERS Safety Report 6796283-3 (Version None)
Quarter: 2010Q2

REPORT INFORMATION
  Report Type: 
  Country: None (occurrence: None)
  Receive Date: 20100625
  Receipt Date: 20091221
  Transmission Date: 20101027
  Serious: Yes (Other)
  Sender: FDA-Public Use
  Company Number: BR-GENENTECH-303340

PATIENT
  Sex: Female
  Weight: 58 kg

DRUGS (3)
  1. RITUXIMAB [Suspect]
     Indication: SYSTEMIC LUPUS ERYTHEMATOSUS
     Dosage: UNK
     Route: 042
     Dates: start: 20090601, end: 20090601
  2. RITUXIMAB [Suspect]
     Indication: THROMBOCYTOPENIA
     Dosage: UNK
     Route: 065
     Dates: end: 20100327
  3. AZATIOPRIN [Concomitant]
     Indication: DRUG USE FOR UNKNOWN INDICATION
     Dosage: 50 MG, TID
     Route: 048

REACTIONS (5)
  - CELLULITIS [None]
  - SOMNOLENCE [None]
  - SWELLING [None]
  - THROMBOCYTOPENIA [None]
  - WEIGHT INCREASED [None]
